FAERS Safety Report 12036996 (Version 1)
Quarter: 2016Q1

REPORT INFORMATION
  Report Type: Report from Study
  Country: US (occurrence: US)
  Receive Date: 20160208
  Receipt Date: 20160208
  Transmission Date: 20160526
  Serious: No
  Sender: FDA-Public Use
  Company Number: US-AMGEN-USASL2016011860

PATIENT
  Age: 53 Year
  Sex: Male

DRUGS (1)
  1. ENBREL [Suspect]
     Active Substance: ETANERCEPT
     Indication: PSORIATIC ARTHROPATHY
     Dosage: 50 MG, UNK
     Route: 065
     Dates: start: 20150610

REACTIONS (5)
  - Sneezing [Unknown]
  - Head discomfort [Unknown]
  - Bloody discharge [Unknown]
  - Nasal congestion [Unknown]
  - Axillary mass [Unknown]

NARRATIVE: CASE EVENT DATE: 2015
